FAERS Safety Report 18139254 (Version 3)
Quarter: 2020Q3

REPORT INFORMATION
  Report Type: Spontaneous
  Country: CH (occurrence: CH)
  Receive Date: 20200812
  Receipt Date: 20200906
  Transmission Date: 20201103
  Serious: Yes (Life-Threatening, Other)
  Sender: FDA-Public Use
  Company Number: CH-ROCHE-2655592

PATIENT
  Age: 57 Year
  Sex: Male

DRUGS (2)
  1. SEVIKAR [Concomitant]
     Active Substance: AMLODIPINE BESYLATE\OLMESARTAN MEDOXOMIL
     Indication: HYPERTONIA
     Route: 048
  2. OCREVUS [Suspect]
     Active Substance: OCRELIZUMAB
     Indication: RELAPSING MULTIPLE SCLEROSIS
     Route: 042
     Dates: start: 201812

REACTIONS (12)
  - Rib fracture [Recovering/Resolving]
  - Sleep apnoea syndrome [Not Recovered/Not Resolved]
  - Ventricular fibrillation [Recovered/Resolved]
  - Brain injury [Recovering/Resolving]
  - Delirium [Not Recovered/Not Resolved]
  - Neurogenic bladder [Recovering/Resolving]
  - Dysuria [Recovering/Resolving]
  - Pulmonary mass [Unknown]
  - Cardiovascular insufficiency [Recovering/Resolving]
  - Phlebitis [Recovering/Resolving]
  - Craniocerebral injury [Recovering/Resolving]
  - Sternal fracture [Recovering/Resolving]

NARRATIVE: CASE EVENT DATE: 202008
